FAERS Safety Report 17964135 (Version 1)
Quarter: 2020Q2

REPORT INFORMATION
  Report Type: Spontaneous
  Country: BE (occurrence: BE)
  Receive Date: 20200630
  Receipt Date: 20200630
  Transmission Date: 20200714
  Serious: Yes (Hospitalization)
  Sender: FDA-Public Use
  Company Number: BE-BAYER-2020-112471

PATIENT
  Age: 31 Year
  Sex: Female
  Weight: 110 kg

DRUGS (1)
  1. JAYDESS 13,5 MG [Suspect]
     Active Substance: LEVONORGESTREL
     Indication: CONTRACEPTION
     Dosage: 14 ?G PER DAY, CONTINUOUSLY
     Route: 015
     Dates: start: 20190830, end: 20200303

REACTIONS (6)
  - Metrorrhagia [Recovering/Resolving]
  - Abdominal pain lower [Recovering/Resolving]
  - Ectopic pregnancy with contraceptive device [Recovering/Resolving]
  - Drug ineffective [None]
  - Ruptured ectopic pregnancy [Recovering/Resolving]
  - Intra-abdominal haemorrhage [Recovering/Resolving]

NARRATIVE: CASE EVENT DATE: 20200303
